FAERS Safety Report 5240999-7 (Version None)
Quarter: 2007Q1

REPORT INFORMATION
  Report Type: 
  Country: None (occurrence: None)
  Receive Date: 20070219
  Receipt Date: 20070209
  Transmission Date: 20070707
  Serious: Yes (Other)
  Sender: FDA-Public Use
  Company Number: FR-ABBOTT-07P-056-0358912-00

PATIENT
  Age: 49 Year
  Sex: Female

DRUGS (3)
  1. DEPAKENE [Suspect]
     Indication: EPILEPSY
     Route: 048
     Dates: start: 19850101, end: 19990101
  2. DEPAKENE [Suspect]
     Route: 048
     Dates: start: 19990101, end: 20000101
  3. DEPAKENE [Suspect]
     Route: 048
     Dates: start: 20000101

REACTIONS (1)
  - FULL BLOOD COUNT ABNORMAL [None]
